FAERS Safety Report 24549621 (Version 2)
Quarter: 2024Q4

REPORT INFORMATION
  Report Type: Spontaneous
  Country: JP (occurrence: JP)
  Receive Date: 20241025
  Receipt Date: 20241217
  Transmission Date: 20250115
  Serious: Yes (Death, Other)
  Sender: GENMAB
  Company Number: JP-GENMAB-2024-03857

PATIENT
  Age: 9 Decade
  Sex: Male

DRUGS (2)
  1. EPKINLY [Suspect]
     Active Substance: EPCORITAMAB-BYSP
     Indication: Diffuse large B-cell lymphoma refractory
     Dosage: UNK, FIRST DOSE AND SECOND DOSE
     Route: 058
     Dates: start: 20240910, end: 202409
  2. EPKINLY [Suspect]
     Active Substance: EPCORITAMAB-BYSP
     Dosage: 48 MILLIGRAM, FROM THE THIRD TO THE SIXTH ADMINISTRATION OF EPKINLY
     Route: 058
     Dates: start: 20240924, end: 20241015

REACTIONS (6)
  - Diffuse large B-cell lymphoma refractory [Fatal]
  - Altered state of consciousness [Unknown]
  - Renal impairment [Unknown]
  - Myalgia [Unknown]
  - Rash [Unknown]
  - Pyrexia [Recovering/Resolving]

NARRATIVE: CASE EVENT DATE: 20240101
